FAERS Safety Report 22152546 (Version 2)
Quarter: 2023Q2

REPORT INFORMATION
  Report Type: Spontaneous
  Country: US (occurrence: US)
  Receive Date: 20230329
  Receipt Date: 20230417
  Transmission Date: 20230722
  Serious: No
  Sender: FDA-Public Use
  Company Number: US-BRISTOL-MYERS SQUIBB COMPANY-2023-039721

PATIENT
  Age: 68 Year
  Sex: Female
  Weight: 89.81 kg

DRUGS (2)
  1. POMALYST [Suspect]
     Active Substance: POMALIDOMIDE
     Indication: Plasma cell myeloma
     Dosage: 3W, 1W OFF
     Route: 048
  2. POMALYST [Suspect]
     Active Substance: POMALIDOMIDE
     Dosage: QD 21D ON 7D OFF
     Route: 048

REACTIONS (3)
  - Pain in extremity [Unknown]
  - Fatigue [Unknown]
  - Blood test abnormal [Unknown]
